FAERS Safety Report 24830689 (Version 1)
Quarter: 2025Q1

REPORT INFORMATION
  Report Type: Spontaneous
  Country: HK (occurrence: HK)
  Receive Date: 20250110
  Receipt Date: 20250110
  Transmission Date: 20250409
  Serious: Yes (Other)
  Sender: RANBAXY
  Company Number: HK-SUN PHARMACEUTICAL INDUSTRIES LTD-2024RR-488520

PATIENT
  Age: 13 Year
  Sex: Male

DRUGS (1)
  1. FLECAINIDE [Suspect]
     Active Substance: FLECAINIDE
     Indication: Product used for unknown indication
     Route: 065

REACTIONS (1)
  - Brugada syndrome [Unknown]
